FAERS Safety Report 9184052 (Version 1)
Quarter: 2013Q1

REPORT INFORMATION
  Report Type: Spontaneous
  Country: US (occurrence: US)
  Receive Date: 20130322
  Receipt Date: 20130322
  Transmission Date: 20140127
  Serious: Yes (Other)
  Sender: FDA-Public Use
  Company Number: US-BAYER-2013-035136

PATIENT
  Sex: Female

DRUGS (1)
  1. ALEVE CAPLET/TABLET,MIDOL EXTENDED RELIEF CAPLET [Suspect]
     Indication: PAIN
     Dosage: 2 DF, BID
     Dates: start: 20130213

REACTIONS (4)
  - Gastric ulcer [Not Recovered/Not Resolved]
  - Haemoglobin decreased [None]
  - Incorrect dose administered [None]
  - Incorrect drug administration duration [None]
